FAERS Safety Report 14771069 (Version 3)
Quarter: 2021Q2

REPORT INFORMATION
  Report Type: Spontaneous
  Country: US (occurrence: US)
  Receive Date: 20180417
  Receipt Date: 20210413
  Transmission Date: 20210716
  Serious: No
  Sender: FDA-Public Use
  Company Number: US-ALLERGAN-1808005US

PATIENT
  Age: 72 Year
  Sex: Female

DRUGS (4)
  1. REFRESH OPTIVE [Concomitant]
     Active Substance: CARBOXYMETHYLCELLULOSE SODIUM\GLYCERIN
     Route: 047
  2. BOTOX COSMETIC [Concomitant]
     Active Substance: ONABOTULINUMTOXINA
     Indication: SKIN WRINKLING
     Dosage: UNK, SINGLE, ONCE PER YEAR
  3. LATISSE [Suspect]
     Active Substance: BIMATOPROST
     Dosage: UNK
     Route: 061
     Dates: start: 20171123
  4. LATISSE [Suspect]
     Active Substance: BIMATOPROST
     Indication: GROWTH OF EYELASHES
     Dosage: UNK
     Route: 061
     Dates: start: 20171123

REACTIONS (7)
  - Madarosis [Not Recovered/Not Resolved]
  - Wrong technique in product usage process [Unknown]
  - Product quality issue [Unknown]
  - Inappropriate schedule of product administration [Unknown]
  - Product container issue [Unknown]
  - Drug ineffective [Unknown]
  - Vitreous floaters [Not Recovered/Not Resolved]

NARRATIVE: CASE EVENT DATE: 20171123
